FAERS Safety Report 15964706 (Version 2)
Quarter: 2019Q1

REPORT INFORMATION
  Report Type: Spontaneous
  Country: IT (occurrence: IT)
  Receive Date: 20190215
  Receipt Date: 20190222
  Transmission Date: 20190418
  Serious: Yes (Hospitalization)
  Sender: FDA-Public Use
  Company Number: IT-TEVA-2019-IT-1010868

PATIENT
  Age: 93 Year
  Sex: Female

DRUGS (8)
  1. SOLOSA 2 MG, COMPRESSE [Concomitant]
     Active Substance: GLIMEPIRIDE
     Indication: TYPE 2 DIABETES MELLITUS
     Dosage: 2 MILLIGRAM DAILY;
     Route: 048
  2. PRITOR (TELMISARTAN) [Interacting]
     Active Substance: TELMISARTAN
     Indication: HYPERTENSION
     Dosage: 80 MILLIGRAM DAILY;
     Route: 048
     Dates: end: 20190112
  3. LANOXIN [Interacting]
     Active Substance: DIGOXIN
     Indication: ATRIAL FIBRILLATION
     Dosage: .06 MILLIGRAM DAILY;
     Route: 048
     Dates: end: 20190112
  4. CARDICOR [Interacting]
     Active Substance: BISOPROLOL
     Indication: CARDIAC FAILURE CHRONIC
     Dosage: 1.25 MILLIGRAM DAILY;
     Dates: end: 20190112
  5. LUCEN (ESOMEPRAZOLE) [Interacting]
     Active Substance: ESOMEPRAZOLE
     Dosage: 20 MILLIGRAM DAILY;
     Route: 048
     Dates: end: 20190112
  6. METFORMIN [Concomitant]
     Active Substance: METFORMIN HYDROCHLORIDE
     Indication: TYPE 2 DIABETES MELLITUS
     Dosage: 1700 MILLIGRAM DAILY;
     Route: 048
  7. FUROSEMIDE. [Suspect]
     Active Substance: FUROSEMIDE
     Indication: HYPERTENSION
     Route: 048
     Dates: end: 20190112
  8. PRITORPLUS 80 MG/25 MG TABLETS [Interacting]
     Active Substance: HYDROCHLOROTHIAZIDE\TELMISARTAN
     Indication: HYPERTENSION
     Dosage: 105 MILLIGRAM DAILY;
     Route: 048
     Dates: end: 20190112

REACTIONS (4)
  - Bradycardia [Recovered/Resolved]
  - Drug interaction [Recovered/Resolved]
  - Loss of consciousness [Recovered/Resolved]
  - Gait disturbance [Recovered/Resolved]

NARRATIVE: CASE EVENT DATE: 20190112
